FAERS Safety Report 22979671 (Version 4)
Quarter: 2023Q4

REPORT INFORMATION
  Report Type: Spontaneous
  Country: CA (occurrence: CA)
  Receive Date: 20230925
  Receipt Date: 20231116
  Transmission Date: 20240109
  Serious: Yes (Hospitalization, Other)
  Sender: FDA-Public Use
  Company Number: CA-PFIZER INC-202201083167

PATIENT
  Age: 53 Year
  Sex: Female

DRUGS (2)
  1. ABRILADA [Suspect]
     Active Substance: ADALIMUMAB-AFZB
     Indication: Crohn^s disease
     Dosage: 40 MG EVERY 2 WEEK, (PREFILLED SYRINGE)
     Route: 058
     Dates: start: 20220513
  2. ABRILADA [Suspect]
     Active Substance: ADALIMUMAB-AFZB
     Dosage: 40 MG EVERY 2 WEEK, (PREFILLED SYRINGE)
     Route: 058
     Dates: start: 20230105

REACTIONS (7)
  - Nephrolithiasis [Not Recovered/Not Resolved]
  - Crohn^s disease [Recovered/Resolved]
  - Post procedural pneumonia [Recovered/Resolved]
  - Nervousness [Unknown]
  - Malaise [Unknown]
  - Flatulence [Unknown]
  - Drug hypersensitivity [Unknown]

NARRATIVE: CASE EVENT DATE: 20220101
